FAERS Safety Report 7369636-2 (Version None)
Quarter: 2011Q1

REPORT INFORMATION
  Report Type: 
  Country: None (occurrence: None)
  Receive Date: 20110317
  Receipt Date: 20110317
  Transmission Date: 20110831
  Serious: Yes (Other)
  Sender: FDA-Public Use
  Company Number: None

PATIENT
  Age: 69 Year
  Sex: Male
  Weight: 90.7194 kg

DRUGS (4)
  1. FUROSEMIDE [Suspect]
     Dosage: 20 MG 1/2 TABLET PER DAY
     Dates: start: 20101020
  2. CARVEDILOL [Suspect]
     Dosage: 3-125MG 1 TABLET TWICE DAILY
     Dates: start: 20101201
  3. CARVEDILOL [Suspect]
     Dosage: 3-125MG 1 TABLET TWICE DAILY
     Dates: start: 20101214
  4. LISINOPRIL [Suspect]

REACTIONS (7)
  - BLOOD PRESSURE INCREASED [None]
  - DISORIENTATION [None]
  - BALANCE DISORDER [None]
  - DIZZINESS [None]
  - HEADACHE [None]
  - FEELING ABNORMAL [None]
  - DRUG HYPERSENSITIVITY [None]
